FAERS Safety Report 24705765 (Version 2)
Quarter: 2024Q4

REPORT INFORMATION
  Report Type: Report from Study
  Country: CO (occurrence: CO)
  Receive Date: 20241206
  Receipt Date: 20241226
  Transmission Date: 20250115
  Serious: Yes (Death, Hospitalization)
  Sender: UCB
  Company Number: CO-UCBSA-2024062913

PATIENT
  Age: 64 Year
  Sex: Female

DRUGS (3)
  1. CERTOLIZUMAB PEGOL [Suspect]
     Active Substance: CERTOLIZUMAB PEGOL
     Indication: Psoriatic arthropathy
     Dosage: 400 MILLIGRAM, MONTHLY (QM)
     Route: 058
     Dates: start: 20190702, end: 20241001
  2. ACETAMINOPHEN [Concomitant]
     Active Substance: ACETAMINOPHEN
     Indication: Product used for unknown indication
     Dosage: UNK
  3. TIRZEPATIDE [Concomitant]
     Active Substance: TIRZEPATIDE
     Indication: Product used for unknown indication
     Dosage: UNK

REACTIONS (10)
  - Respiratory arrest [Fatal]
  - Lung neoplasm [Not Recovered/Not Resolved]
  - Decreased appetite [Not Recovered/Not Resolved]
  - Incoherent [Not Recovered/Not Resolved]
  - Tremor [Not Recovered/Not Resolved]
  - Hot flush [Not Recovered/Not Resolved]
  - Asthenia [Not Recovered/Not Resolved]
  - Rash [Unknown]
  - Chills [Not Recovered/Not Resolved]
  - Off label use [Unknown]

NARRATIVE: CASE EVENT DATE: 20190702
